FAERS Safety Report 5536884-3 (Version None)
Quarter: 2007Q4

REPORT INFORMATION
  Report Type: 
  Country: None (occurrence: None)
  Receive Date: 20071206
  Receipt Date: 20070215
  Transmission Date: 20080405
  Serious: Yes (Hospitalization)
  Sender: FDA-Public Use
  Company Number: US-AMGEN-US208283

PATIENT
  Sex: Female
  Weight: 60.4 kg

DRUGS (12)
  1. ENBREL [Suspect]
     Indication: RHEUMATOID ARTHRITIS
     Route: 058
     Dates: start: 19990301, end: 20060701
  2. CARDIZEM [Concomitant]
  3. DIGOXIN [Concomitant]
  4. PREMARIN [Concomitant]
  5. RANITIDINE HCL [Concomitant]
  6. LIPITOR [Concomitant]
  7. ASPIRIN [Concomitant]
  8. VITAMIN CAP [Concomitant]
  9. TYLENOL [Concomitant]
  10. ALBUTEROL [Concomitant]
  11. CELEBREX [Concomitant]
  12. ADVAIR DISKUS 100/50 [Concomitant]

REACTIONS (3)
  - COUGH [None]
  - DEVICE RELATED INFECTION [None]
  - STAPHYLOCOCCAL INFECTION [None]
